FAERS Safety Report 9915240 (Version 1)
Quarter: 2014Q1

REPORT INFORMATION
  Report Type: Report from Study
  Country: CA (occurrence: CA)
  Receive Date: 20140221
  Receipt Date: 20140221
  Transmission Date: 20141002
  Serious: Yes (Death)
  Sender: FDA-Public Use
  Company Number: CA-ROCHE-1352877

PATIENT
  Age: 64 Year
  Sex: Female

DRUGS (6)
  1. AVASTIN [Suspect]
     Indication: OVARIAN CANCER
     Route: 042
     Dates: start: 201311, end: 201401
  2. SPIRIVA [Concomitant]
  3. GABAPENTIN [Concomitant]
  4. VOLTAREN [Concomitant]
  5. LOVENOX [Concomitant]
  6. TYLENOL [Concomitant]

REACTIONS (2)
  - Death [Fatal]
  - Off label use [Unknown]
